FAERS Safety Report 7220009-2 (Version None)
Quarter: 2011Q1

REPORT INFORMATION
  Report Type: 
  Country: None (occurrence: None)
  Receive Date: 20110111
  Receipt Date: 20100429
  Transmission Date: 20110831
  Serious: Yes (Other)
  Sender: FDA-Public Use
  Company Number: US-PFIZER INC-2008098896

PATIENT
  Sex: Female
  Weight: 62.1 kg

DRUGS (4)
  1. BACTRIM [Concomitant]
     Dosage: UNK
     Route: 065
  2. ATENOLOL AND CHLORTHALIDONE [Concomitant]
     Dosage: UNK
     Route: 065
     Dates: start: 20051201, end: 20080501
  3. TENORMIN [Suspect]
     Dosage: 25 MG, UNK
     Route: 048
  4. ZESTORETIC [Suspect]
     Indication: HYPERTENSION
     Dosage: 10/12.5 MG, UNK
     Route: 048
     Dates: start: 20020101, end: 20051123

REACTIONS (15)
  - RENAL FAILURE [None]
  - HEADACHE [None]
  - PHOTOPHOBIA [None]
  - NERVOUS SYSTEM DISORDER [None]
  - BLADDER CANCER [None]
  - HYPERTENSION [None]
  - TRANSIENT ISCHAEMIC ATTACK [None]
  - HEART RATE IRREGULAR [None]
  - PAIN [None]
  - VISUAL IMPAIRMENT [None]
  - EYE DISORDER [None]
  - TYMPANIC MEMBRANE PERFORATION [None]
  - DEAFNESS [None]
  - TINNITUS [None]
  - EYE HAEMORRHAGE [None]
